FAERS Safety Report 4505923-0 (Version None)
Quarter: 2004Q4

REPORT INFORMATION
  Report Type: 
  Country: None (occurrence: None)
  Receive Date: 20041025
  Receipt Date: 20040301
  Transmission Date: 20050328
  Serious: Yes (Other)
  Sender: FDA-Public Use
  Company Number: US-JNJFOC-20030900208

PATIENT
  Age: 67 Year
  Sex: Male
  Weight: 85.2762 kg

DRUGS (19)
  1. REMICADE [Suspect]
     Indication: RHEUMATOID ARTHRITIS
     Dosage: INTRAVENOUS
     Route: 042
     Dates: start: 20030326
  2. REMICADE [Suspect]
     Indication: RHEUMATOID ARTHRITIS
     Dosage: INTRAVENOUS
     Route: 042
     Dates: start: 20030521
  3. REMICADE [Suspect]
     Indication: RHEUMATOID ARTHRITIS
     Dosage: INTRAVENOUS
     Route: 042
     Dates: start: 20030716
  4. REMICADE [Suspect]
     Indication: RHEUMATOID ARTHRITIS
     Dosage: INTRAVENOUS
     Route: 042
     Dates: start: 20030827
  5. ARAVA [Suspect]
     Indication: RHEUMATOID ARTHRITIS
     Dosage: 10 MG, IN 1 DAY , 500 MG, INTRAVENOUS; SEE IMAGE
     Route: 042
  6. PREDNISONE [Concomitant]
  7. FOLIC ACID [Concomitant]
  8. NEXIUM [Concomitant]
  9. LANTUS [Concomitant]
  10. HUMALOG [Concomitant]
  11. DARVOCET [Concomitant]
  12. METHOTREXATE [Concomitant]
  13. ZOCOR [Concomitant]
  14. ACETYLSALICYLIC ACID SRT [Concomitant]
  15. LEUCOVORIN CALCIUM [Concomitant]
  16. ZETIA (CHOLESTEROL- AND TRIGLYCERIDE REDUCERS) [Concomitant]
  17. CENTRUM SILVER (CENTRUM SILVER) [Concomitant]
  18. CELEBREX [Concomitant]
  19. HUMIRA [Concomitant]

REACTIONS (12)
  - CHEST PAIN [None]
  - COLD SWEAT [None]
  - DIARRHOEA [None]
  - DIZZINESS [None]
  - DRY SKIN [None]
  - DYSPNOEA [None]
  - FEELING COLD [None]
  - FLANK PAIN [None]
  - NAUSEA [None]
  - TREMOR [None]
  - VOMITING [None]
  - WEIGHT DECREASED [None]
